FAERS Safety Report 9868315 (Version 1)
Quarter: 2014Q1

REPORT INFORMATION
  Report Type: Spontaneous
  Country: CO (occurrence: CO)
  Receive Date: 20140204
  Receipt Date: 20140204
  Transmission Date: 20141002
  Serious: Yes (Hospitalization)
  Sender: FDA-Public Use
  Company Number: CO-UCBSA-111540

PATIENT
  Age: 69 Year
  Sex: Female

DRUGS (4)
  1. CIMZIA [Suspect]
     Indication: RHEUMATOID ARTHRITIS
     Dosage: 200 MG
     Route: 058
     Dates: start: 20120203, end: 20131024
  2. PIRIDOXINE [Concomitant]
  3. ETAMBUTOL [Concomitant]
  4. IPRATROPIUM BROMIDE [Concomitant]
     Dosage: EACH 6 HOURS BY INHALER

REACTIONS (1)
  - Tuberculosis [Unknown]
